FAERS Safety Report 8764401 (Version 1)
Quarter: 2012Q4

REPORT INFORMATION
  Report Type: 
  Country: FR (occurrence: FR)
  Receive Date: 20120831
  Receipt Date: 20120831
  Transmission Date: 20130627
  Serious: Yes (Other)
  Sender: FDA-Public Use
  Company Number: PHHY2012FR075256

PATIENT
  Age: 78 Year
  Sex: Female

DRUGS (4)
  1. ACLASTA [Suspect]
     Indication: OSTEOPOROSIS
     Route: 042
     Dates: start: 201208
  2. HUMIRA [Concomitant]
     Indication: COLITIS
  3. CORTICOSTEROIDS [Concomitant]
     Dosage: UNK UKN, UNK
  4. CORTICOSTEROIDS [Concomitant]
     Dosage: 20 mg, daily

REACTIONS (4)
  - Proctocolitis [Recovering/Resolving]
  - Haematochezia [Recovering/Resolving]
  - Diarrhoea [Unknown]
  - Pain [Unknown]
